FAERS Safety Report 8139890-8 (Version None)
Quarter: 2012Q1

REPORT INFORMATION
  Report Type: 
  Country: None (occurrence: None)
  Receive Date: 20120215
  Receipt Date: 20120131
  Transmission Date: 20120608
  Serious: Yes (Other)
  Sender: FDA-Public Use
  Company Number: NO-WATSON-2012-02440

PATIENT
  Age: 75 Year
  Sex: Male

DRUGS (3)
  1. HALDOL [Suspect]
     Indication: PRODUCT USED FOR UNKNOWN INDICATION
  2. ERYTHROMYCIN [Suspect]
     Indication: PRODUCT USED FOR UNKNOWN INDICATION
     Dosage: UNKNOWN
     Route: 065
  3. CORDARONE [Suspect]
     Indication: PRODUCT USED FOR UNKNOWN INDICATION

REACTIONS (4)
  - TORSADE DE POINTES [None]
  - VENTRICULAR FIBRILLATION [None]
  - ELECTROCARDIOGRAM QT PROLONGED [None]
  - VENTRICULAR EXTRASYSTOLES [None]
